APPROVED DRUG PRODUCT: IBANDRONATE SODIUM
Active Ingredient: IBANDRONATE SODIUM
Strength: EQ 3MG BASE/3ML
Dosage Form/Route: INJECTABLE;INTRAVENOUS
Application: A206058 | Product #001 | TE Code: AP
Applicant: ACCORD HEALTHCARE INC
Approved: Feb 5, 2016 | RLD: No | RS: No | Type: RX